FAERS Safety Report 9996037 (Version 1)
Quarter: 2014Q1

REPORT INFORMATION
  Report Type: Spontaneous
  Country: US (occurrence: None)
  Receive Date: 20140310
  Receipt Date: 20140310
  Transmission Date: 20141002
  Serious: Yes (Hospitalization)
  Sender: FDA-Public Use
  Company Number: None

PATIENT
  Age: 85 Year
  Sex: Male
  Weight: 102.4 kg

DRUGS (1)
  1. CLOPIDOGREL [Suspect]
     Route: 048
     Dates: start: 20140214, end: 20140306

REACTIONS (1)
  - Gastrointestinal haemorrhage [None]
